FAERS Safety Report 6486568-2 (Version None)
Quarter: 2009Q4

REPORT INFORMATION
  Report Type: 
  Country: None (occurrence: None)
  Receive Date: 20091210
  Receipt Date: 20091202
  Transmission Date: 20100525
  Serious: No
  Sender: FDA-Public Use
  Company Number: PHHY2009CA50722

PATIENT
  Sex: Male

DRUGS (1)
  1. EXJADE [Suspect]
     Indication: MYELODYSPLASTIC SYNDROME
     Dosage: 1750 MG, QD
     Route: 048
     Dates: start: 20081101

REACTIONS (5)
  - COUGH [None]
  - DRY SKIN [None]
  - PRURITUS [None]
  - PYREXIA [None]
  - SERUM FERRITIN INCREASED [None]
